FAERS Safety Report 17051850 (Version 2)
Quarter: 2020Q1

REPORT INFORMATION
  Report Type: Report from Study
  Country: CN (occurrence: CN)
  Receive Date: 20191120
  Receipt Date: 20200219
  Transmission Date: 20200409
  Serious: Yes (Hospitalization)
  Sender: FDA-Public Use
  Company Number: CN-TERSERA THERAPEUTICS LLC-2019TRS002637

PATIENT

DRUGS (4)
  1. BICALUTAMIDE. [Suspect]
     Active Substance: BICALUTAMIDE
     Indication: PROSTATE CANCER
     Dosage: 50 MILLIGRAM, QD
     Route: 048
     Dates: start: 20190508
  2. TAMSULOSIN HYDROCHLORIDE. [Concomitant]
     Active Substance: TAMSULOSIN HYDROCHLORIDE
     Indication: PRODUCT USED FOR UNKNOWN INDICATION
     Dosage: 0.2 MILLIGRAM, QD
     Route: 048
     Dates: start: 20190508
  3. ZOLADEX [Suspect]
     Active Substance: GOSERELIN ACETATE
     Dosage: 10.8 MG,EVERY THREE MONTHS
     Route: 058
     Dates: start: 20190801
  4. ZOLADEX [Suspect]
     Active Substance: GOSERELIN ACETATE
     Indication: PROSTATE CANCER
     Dosage: 10.8 MG,EVERY THREE MONTHS
     Route: 058
     Dates: start: 20190508

REACTIONS (1)
  - Transitional cell cancer of the renal pelvis and ureter [Recovering/Resolving]

NARRATIVE: CASE EVENT DATE: 20190831
